FAERS Safety Report 20192541 (Version 1)
Quarter: 2021Q4

REPORT INFORMATION
  Report Type: Report from Study
  Country: AU (occurrence: AU)
  Receive Date: 20211216
  Receipt Date: 20211216
  Transmission Date: 20220303
  Serious: Yes (Hospitalization)
  Sender: FDA-Public Use
  Company Number: AU-BEH-2021139206

PATIENT
  Age: 75 Year
  Sex: Male
  Weight: 62 kg

DRUGS (1)
  1. HIZENTRA [Suspect]
     Active Substance: HUMAN IMMUNOGLOBULIN G
     Indication: Secondary immunodeficiency
     Dosage: 7 GRAM
     Route: 058

REACTIONS (3)
  - Malaise [Unknown]
  - Pain [Unknown]
  - Decreased appetite [Unknown]
